FAERS Safety Report 15222161 (Version 1)
Quarter: 2018Q3

REPORT INFORMATION
  Report Type: Spontaneous
  Country: US (occurrence: US)
  Receive Date: 20180705
  Receipt Date: 20180705
  Transmission Date: 20181010
  Serious: Yes (Hospitalization)
  Sender: FDA-Public Use
  Company Number: None

PATIENT
  Age: 66 Year
  Sex: Female

DRUGS (1)
  1. LIRAGLUTIDE [Suspect]
     Active Substance: LIRAGLUTIDE
     Indication: DIABETES MELLITUS
     Route: 058
     Dates: start: 20180408, end: 20180530

REACTIONS (9)
  - Nausea [None]
  - Diarrhoea [None]
  - Hepatic steatosis [None]
  - Abdominal pain upper [None]
  - Vomiting [None]
  - Hepatic mass [None]
  - Pancreatitis [None]
  - Lipase increased [None]
  - Abdominal tenderness [None]

NARRATIVE: CASE EVENT DATE: 20180530
